FAERS Safety Report 18170326 (Version 1)
Quarter: 2020Q3

REPORT INFORMATION
  Report Type: Spontaneous
  Country: PT (occurrence: PT)
  Receive Date: 20200819
  Receipt Date: 20200819
  Transmission Date: 20201103
  Serious: Yes (Hospitalization)
  Sender: FDA-Public Use
  Company Number: PT-TEVA-2020-PT-1815570

PATIENT
  Age: 58 Year
  Sex: Female

DRUGS (8)
  1. LAMOTRIGINE. [Interacting]
     Active Substance: LAMOTRIGINE
     Dosage: 200 MG, 2X/DAY, 400 MG
     Dates: start: 200812, end: 20090115
  2. OXCARBAMAZEPINE [Interacting]
     Active Substance: OXCARBAZEPINE
     Indication: SEIZURE
     Dosage: UNKNOWN
     Route: 065
  3. ZONEGRAN [Interacting]
     Active Substance: ZONISAMIDE
     Dosage: 100 MILLIGRAM DAILY;
     Route: 048
     Dates: start: 200812, end: 200812
  4. ARICEPT [Interacting]
     Active Substance: DONEPEZIL HYDROCHLORIDE
     Indication: PRODUCT USED FOR UNKNOWN INDICATION
     Dosage: 10 MILLIGRAM DAILY;
     Route: 048
     Dates: start: 2008
  5. ZONEGRAN [Interacting]
     Active Substance: ZONISAMIDE
     Indication: SEIZURE
     Dosage: 200 MILLIGRAM DAILY;
     Route: 048
     Dates: start: 200812, end: 2008
  6. ZONEGRAN [Interacting]
     Active Substance: ZONISAMIDE
     Dosage: 100 MILLIGRAM DAILY;
     Route: 048
     Dates: start: 200812, end: 20090103
  7. OXCARBAMAZEPINE [Interacting]
     Active Substance: OXCARBAZEPINE
     Dosage: 150 MG, 2X/DAY, 300 MG
     Dates: start: 200812, end: 20090105
  8. LAMOTRIGINE. [Suspect]
     Active Substance: LAMOTRIGINE
     Indication: SEIZURE
     Dosage: UNKNOWN
     Route: 065

REACTIONS (4)
  - Abdominal pain upper [Unknown]
  - Urticaria [Recovering/Resolving]
  - Cholestasis [Recovering/Resolving]
  - Drug interaction [Unknown]

NARRATIVE: CASE EVENT DATE: 200812
